FAERS Safety Report 9232967 (Version 1)
Quarter: 2013Q1

REPORT INFORMATION
  Report Type: Spontaneous
  Country: US (occurrence: None)
  Receive Date: 20121031
  Receipt Date: 20121031
  Transmission Date: 20140127
  Serious: No
  Sender: FDA-Public Use
  Company Number: PHEH2012US012307

PATIENT
  Age: 36 Year
  Sex: Female
  Weight: 58.06 kg

DRUGS (1)
  1. GILENYA (FTY) CAPSULES 0.5MG [Suspect]
     Indication: MULTIPLE SCLEROSIS
     Route: 048

REACTIONS (9)
  - Hypermetropia [None]
  - Hypersensitivity [None]
  - Chills [None]
  - Abdominal pain [None]
  - Vomiting [None]
  - Constipation [None]
  - Sinusitis [None]
  - Flatulence [None]
  - Nasopharyngitis [None]
